FAERS Safety Report 6612769-6 (Version None)
Quarter: 2010Q1

REPORT INFORMATION
  Report Type: 
  Country: None (occurrence: None)
  Receive Date: 20100303
  Receipt Date: 20100219
  Transmission Date: 20100710
  Serious: Yes (Hospitalization)
  Sender: FDA-Public Use
  Company Number: IE-PFIZER INC-2010020437

PATIENT
  Age: 63 Year
  Sex: Male

DRUGS (1)
  1. PHENYTOIN SODIUM CAP [Suspect]
     Indication: CONVULSION
     Dosage: 100 MG, 2X/DAY

REACTIONS (5)
  - BACK PAIN [None]
  - CONFUSIONAL STATE [None]
  - DISORIENTATION [None]
  - MOVEMENT DISORDER [None]
  - THERAPEUTIC AGENT TOXICITY [None]
